FAERS Safety Report 11113725 (Version 1)
Quarter: 2015Q2

REPORT INFORMATION
  Report Type: Spontaneous
  Country: RU (occurrence: RU)
  Receive Date: 20150514
  Receipt Date: 20150514
  Transmission Date: 20150821
  Serious: Yes (Hospitalization)
  Sender: FDA-Public Use
  Company Number: RU-GLAXOSMITHKLINE INC.-RU2015GSK062376

PATIENT
  Age: 30 Year
  Sex: Female

DRUGS (1)
  1. ZINNAT [Suspect]
     Active Substance: CEFUROXIME AXETIL
     Indication: PRODUCT USED FOR UNKNOWN INDICATION
     Route: 048

REACTIONS (8)
  - Localised oedema [Recovered/Resolved]
  - Pruritus [Recovered/Resolved]
  - Chills [Recovered/Resolved]
  - Laryngospasm [Recovered/Resolved]
  - Dyspnoea [Recovered/Resolved]
  - Tremor [Recovered/Resolved]
  - Rash [Recovered/Resolved]
  - Erythema [Recovered/Resolved]
